FAERS Safety Report 13832302 (Version 1)
Quarter: 2017Q3

REPORT INFORMATION
  Report Type: Report from Study
  Country: MX (occurrence: MX)
  Receive Date: 20170804
  Receipt Date: 20170804
  Transmission Date: 20171127
  Serious: Yes (Other)
  Sender: FDA-Public Use
  Company Number: PHHY2017MX112526

PATIENT
  Sex: Female

DRUGS (3)
  1. CAPTOPRIL. [Concomitant]
     Active Substance: CAPTOPRIL
     Indication: PRODUCT USED FOR UNKNOWN INDICATION
     Route: 065
  2. ROFUCAL [Concomitant]
     Indication: PRODUCT USED FOR UNKNOWN INDICATION
     Dosage: 25 MG, UNK
     Route: 065
  3. EXFORGE [Suspect]
     Active Substance: AMLODIPINE BESYLATE\VALSARTAN
     Indication: HYPERTENSION
     Dosage: 1 DF, (AMLODIPINE 5 MG AND VALSARTAN 320 MG), QD
     Route: 065
     Dates: start: 20170517, end: 201706

REACTIONS (4)
  - Cataract [Unknown]
  - Nervousness [Unknown]
  - Erythema [Unknown]
  - Therapeutic response decreased [Unknown]
